FAERS Safety Report 21459491 (Version 1)
Quarter: 2022Q4

REPORT INFORMATION
  Report Type: Spontaneous
  Country: US (occurrence: None)
  Receive Date: 20221014
  Receipt Date: 20221014
  Transmission Date: 20230113
  Serious: Yes (Death, Life-Threatening, Hospitalization, Other)
  Sender: FDA-Public Use
  Company Number: None

PATIENT
  Age: 69 Year
  Sex: Female
  Weight: 76.4 kg

DRUGS (1)
  1. DEXMEDETOMIDINE [Suspect]
     Active Substance: DEXMEDETOMIDINE
     Indication: Sedation
     Dosage: OTHER FREQUENCY : PER HOUR;?
     Route: 041
     Dates: start: 20220914, end: 20220916

REACTIONS (2)
  - Pyrexia [None]
  - Therapy cessation [None]

NARRATIVE: CASE EVENT DATE: 20220916
